FAERS Safety Report 5469322-X (Version None)
Quarter: 2007Q3

REPORT INFORMATION
  Report Type: 
  Country: None (occurrence: None)
  Receive Date: 20070927
  Receipt Date: 20070920
  Transmission Date: 20080115
  Serious: Yes (Death, Other)
  Sender: FDA-Public Use
  Company Number: US-BRISTOL-MYERS SQUIBB COMPANY-13915459

PATIENT
  Age: 47 Year
  Sex: Female
  Weight: 102 kg

DRUGS (11)
  1. DASATINIB [Suspect]
     Indication: LEIOMYOSARCOMA
     Dosage: RESTARTED 16AUG-07,50MG BID,LAST DOSE WAS ON 05-SEP-07.
     Dates: start: 20070810, end: 20070812
  2. LASIX [Concomitant]
     Dates: start: 20070807
  3. POTASSIUM CHLORIDE [Concomitant]
     Dates: start: 20070807
  4. SYNTHROID [Concomitant]
     Dates: start: 20061018
  5. XANAX [Concomitant]
     Dates: start: 20070818
  6. COMPAZINE [Concomitant]
  7. TYLENOL (CAPLET) [Concomitant]
  8. IMODIUM [Concomitant]
     Dates: start: 20061129
  9. CIPRO [Concomitant]
     Dates: start: 20070829, end: 20070904
  10. CELEXA [Concomitant]
     Dates: start: 20070801
  11. MULTI-VITAMIN [Concomitant]

REACTIONS (3)
  - HYPONATRAEMIA [None]
  - MALIGNANT NEOPLASM PROGRESSION [None]
  - PLEURAL EFFUSION [None]
